FAERS Safety Report 9038624 (Version 1)
Quarter: 2013Q1

REPORT INFORMATION
  Report Type: Report from Study
  Country: US (occurrence: US)
  Receive Date: 20130129
  Receipt Date: 20130129
  Transmission Date: 20140127
  Serious: No
  Sender: FDA-Public Use
  Company Number: US-ABBOTT-12P-163-0935273-00

PATIENT
  Age: 54 Year
  Sex: Female

DRUGS (10)
  1. HUMIRA 40 MG/0.8 ML PEN [Suspect]
     Indication: PSORIASIS
     Dates: start: 20120419
  2. WELLBUTRIN [Concomitant]
     Indication: DEPRESSION
     Dosage: 450MG DAILY
  3. CYMBALTA [Concomitant]
     Indication: DEPRESSION
     Dosage: 90MG DAILY
  4. LOSARTAN [Concomitant]
     Indication: BLOOD PRESSURE
     Dosage: 100MG DAILY
  5. JANUMET [Concomitant]
     Indication: DIABETES MELLITUS
     Dosage: 50MG/500MG TWICE DAILY
  6. CARDIZEM [Concomitant]
     Indication: PALPITATIONS
     Dosage: 120MG DAILY
  7. FOLIC ACID [Concomitant]
     Indication: PSORIASIS
     Dosage: 1MG DAILY
  8. VITAMIN B12 [Concomitant]
     Indication: DEPRESSION
     Dosage: 2000MCG DAILY
  9. PROTOPIC [Concomitant]
     Indication: PRODUCT USED FOR UNKNOWN INDICATION
     Dosage: NIGHTLY ON HANDS
     Route: 061
  10. EFUDEX [Concomitant]
     Indication: PRODUCT USED FOR UNKNOWN INDICATION
     Dosage: TWICE DAILY
     Route: 061

REACTIONS (3)
  - Nausea [Recovering/Resolving]
  - Diarrhoea [Recovering/Resolving]
  - Decreased appetite [Recovering/Resolving]
